FAERS Safety Report 10563157 (Version 1)
Quarter: 2014Q4

REPORT INFORMATION
  Report Type: Spontaneous
  Country: US (occurrence: US)
  Receive Date: 20141104
  Receipt Date: 20141104
  Transmission Date: 20150529
  Serious: No
  Sender: FDA-Public Use
  Company Number: US-009507513-1410USA014626

PATIENT
  Sex: Female

DRUGS (1)
  1. JANUVIA [Suspect]
     Active Substance: SITAGLIPTIN PHOSPHATE
     Dosage: UNK
     Route: 048
     Dates: start: 20141004

REACTIONS (4)
  - Scab [Unknown]
  - Urticaria [Unknown]
  - Peripheral swelling [Unknown]
  - Acne [Unknown]

NARRATIVE: CASE EVENT DATE: 201410
